FAERS Safety Report 7682109-2 (Version None)
Quarter: 2011Q3

REPORT INFORMATION
  Report Type: 
  Country: None (occurrence: None)
  Receive Date: 20110804
  Receipt Date: 20110728
  Transmission Date: 20111222
  Serious: No
  Sender: FDA-Public Use
  Company Number: B0736513A

PATIENT
  Age: 46 Year
  Sex: Female

DRUGS (8)
  1. TACROLIMUS [Suspect]
     Indication: PRODUCT USED FOR UNKNOWN INDICATION
  2. MYCOPHENOLATE MOFETIL [Suspect]
     Indication: PRODUCT USED FOR UNKNOWN INDICATION
  3. RITUXIMAB (FORMULATION UNKNOWN) (RITUXIMAB) [Suspect]
     Indication: PRODUCT USED FOR UNKNOWN INDICATION
     Dosage: INTRAVENOUS
     Route: 042
  4. BECONASE [Suspect]
     Indication: PRODUCT USED FOR UNKNOWN INDICATION
     Dosage: ORAL
     Route: 048
  5. PREDNISOLONE [Suspect]
     Indication: DIARRHOEA
  6. PENTOSTATIN [Concomitant]
  7. METHYLPREDNISOLONE [Suspect]
     Indication: PRODUCT USED FOR UNKNOWN INDICATION
  8. BUDESONIDE [Suspect]
     Indication: PRODUCT USED FOR UNKNOWN INDICATION

REACTIONS (7)
  - CULTURE STOOL POSITIVE [None]
  - GRAFT VERSUS HOST DISEASE [None]
  - CHOLESTASIS [None]
  - CAMPYLOBACTER INFECTION [None]
  - ROTAVIRUS INFECTION [None]
  - BILE DUCT OBSTRUCTION [None]
  - CRYPTOSPORIDIOSIS INFECTION [None]
